FAERS Safety Report 21140218 (Version 2)
Quarter: 2022Q3

REPORT INFORMATION
  Report Type: Spontaneous
  Country: GB (occurrence: GB)
  Receive Date: 20220728
  Receipt Date: 20220816
  Transmission Date: 20221027
  Serious: Yes (Hospitalization)
  Sender: FDA-Public Use
  Company Number: GB-BEH-2022147878

PATIENT
  Sex: Male

DRUGS (1)
  1. PRIVIGEN [Suspect]
     Active Substance: HUMAN IMMUNOGLOBULIN G
     Indication: Bruton^s agammaglobulinaemia
     Dosage: 35 GRAM, Q3W
     Route: 065

REACTIONS (5)
  - Immunoglobulins decreased [Unknown]
  - Malaise [Unknown]
  - General physical health deterioration [Unknown]
  - Product confusion [Unknown]
  - Product dose omission issue [Unknown]
